FAERS Safety Report 8792036 (Version 1)
Quarter: 2012Q4

REPORT INFORMATION
  Report Type: 
  Country: US (occurrence: US)
  Receive Date: 20120918
  Receipt Date: 20120918
  Transmission Date: 20130627
  Serious: Yes (Other)
  Sender: FDA-Public Use
  Company Number: US-JNJFOC-20120904574

PATIENT
  Age: 36 Year
  Sex: Male

DRUGS (8)
  1. HALDOL [Suspect]
     Indication: DELUSION
     Route: 065
     Dates: end: 2012
  2. ZITHROMAX [Interacting]
     Indication: CELLULITIS
     Route: 065
     Dates: start: 2012
  3. ZITHROMAX [Interacting]
     Indication: CELLULITIS
     Route: 065
     Dates: start: 201203
  4. THIOTHIXENE HYDROCHLORIDE [Suspect]
     Indication: DELUSION
     Route: 065
     Dates: start: 20120409
  5. THIOTHIXENE HYDROCHLORIDE [Suspect]
     Indication: DELUSION
     Route: 065
     Dates: start: 2012
  6. SYNTHROID [Concomitant]
     Indication: HYPERTHYROIDISM
     Route: 065
  7. WELLBUTRIN [Concomitant]
     Indication: SCHIZOAFFECTIVE DISORDER
     Route: 065
  8. WELLBUTRIN [Concomitant]
     Indication: SCHIZOAFFECTIVE DISORDER
     Route: 065

REACTIONS (3)
  - Hallucination, visual [Unknown]
  - Delusion [Unknown]
  - Drug interaction [Unknown]
